FAERS Safety Report 7287635-6 (Version None)
Quarter: 2011Q1

REPORT INFORMATION
  Report Type: 
  Country: None (occurrence: None)
  Receive Date: 20110208
  Receipt Date: 20110208
  Transmission Date: 20110831
  Serious: Yes (Hospitalization)
  Sender: FDA-Public Use
  Company Number: None

PATIENT
  Age: 79 Year
  Sex: Male
  Weight: 83.1897 kg

DRUGS (2)
  1. LOPID [Suspect]
     Indication: ATRIAL FIBRILLATION
  2. DIGOXIN [Suspect]
     Indication: ATRIAL FIBRILLATION

REACTIONS (5)
  - CARDIOACTIVE DRUG LEVEL ABOVE THERAPEUTIC [None]
  - BRADYCARDIA [None]
  - RENAL FAILURE ACUTE [None]
  - ASTHENIA [None]
  - NEUROPATHY PERIPHERAL [None]
